FAERS Safety Report 11321362 (Version 1)
Quarter: 2015Q3

REPORT INFORMATION
  Report Type: Spontaneous
  Country: US (occurrence: US)
  Receive Date: 20150729
  Receipt Date: 20150729
  Transmission Date: 20151125
  Serious: No
  Sender: FDA-Public Use
  Company Number: US-LEO PHARMA-235905

PATIENT
  Sex: Female

DRUGS (3)
  1. PERCOCET [Concomitant]
     Active Substance: ACETAMINOPHEN\OXYCODONE HYDROCHLORIDE
     Indication: ANKLE OPERATION
  2. PICATO [Suspect]
     Active Substance: INGENOL MEBUTATE
     Indication: PRODUCT USED FOR UNKNOWN INDICATION
     Dates: start: 20150720
  3. MELOXICAM. [Concomitant]
     Active Substance: MELOXICAM
     Indication: ANKLE OPERATION

REACTIONS (11)
  - Application site vesicles [Not Recovered/Not Resolved]
  - Application site pustules [Not Recovered/Not Resolved]
  - Application site erythema [Not Recovered/Not Resolved]
  - Rash pustular [Not Recovered/Not Resolved]
  - Application site swelling [Not Recovered/Not Resolved]
  - Application site warmth [Not Recovered/Not Resolved]
  - Erythema [Not Recovered/Not Resolved]
  - Swelling [Not Recovered/Not Resolved]
  - Blister [Not Recovered/Not Resolved]
  - Drug administered at inappropriate site [Unknown]
  - Feeling hot [Not Recovered/Not Resolved]

NARRATIVE: CASE EVENT DATE: 20150521
